FAERS Safety Report 18972721 (Version 1)
Quarter: 2021Q1

REPORT INFORMATION
  Report Type: Spontaneous
  Country: US (occurrence: US)
  Receive Date: 20210305
  Receipt Date: 20210305
  Transmission Date: 20210420
  Serious: No
  Sender: FDA-Public Use
  Company Number: US-SA-2021SA072686

PATIENT
  Sex: Male

DRUGS (2)
  1. AUBAGIO [Suspect]
     Active Substance: TERIFLUNOMIDE
     Indication: MULTIPLE SCLEROSIS
     Dosage: 14 MG, QD
     Route: 048
     Dates: start: 20180129
  2. DALFAMPRIDINE EXTENDED RELEASE [Concomitant]
     Active Substance: DALFAMPRIDINE
     Route: 065

REACTIONS (2)
  - Fall [Not Recovered/Not Resolved]
  - Product dose omission issue [Unknown]
